FAERS Safety Report 8053851 (Version 5)
Quarter: 2013Q3

REPORT INFORMATION
  Report Type: Report from Study
  Country: US (occurrence: US)
  Receive Date: 20110726
  Receipt Date: 20130813
  Transmission Date: 20140515
  Serious: Yes (Hospitalization)
  Sender: FDA-Public Use
  Company Number: US-JNJFOC-20110510117

PATIENT
  Age: 18 Year
  Sex: Male
  Weight: 91.9 kg

DRUGS (6)
  1. REMICADE [Suspect]
     Indication: INFLAMMATORY BOWEL DISEASE
     Dosage: DOSE AND FREQUENCY UNSPECIFIED
     Route: 042
     Dates: start: 20080725
  2. REMICADE [Suspect]
     Indication: INFLAMMATORY BOWEL DISEASE
     Route: 042
     Dates: start: 20100412, end: 20100818
  3. HUMIRA [Concomitant]
     Indication: INFLAMMATORY BOWEL DISEASE
     Dosage: DOSE AND FREQUENCY UNSPECIFIED
     Dates: start: 20100723
  4. PANTOPRAZOLE [Concomitant]
  5. ANTIBIOTICS NOS [Concomitant]
     Indication: INFLAMMATORY BOWEL DISEASE
  6. PREDNISONE [Concomitant]

REACTIONS (3)
  - Large intestinal stenosis [Recovered/Resolved with Sequelae]
  - Anal abscess [Recovered/Resolved]
  - Abdominal abscess [Recovered/Resolved]
